FAERS Safety Report 13094932 (Version 3)
Quarter: 2017Q1

REPORT INFORMATION
  Report Type: Report from Study
  Country: US (occurrence: US)
  Receive Date: 20170106
  Receipt Date: 20170222
  Transmission Date: 20170428
  Serious: Yes (Hospitalization, Other)
  Sender: FDA-Public Use
  Company Number: US-ACTELION-A-US2016-143882

PATIENT
  Age: 78 Year
  Sex: Male
  Weight: 108.84 kg

DRUGS (4)
  1. ADEMPAS [Concomitant]
     Active Substance: RIOCIGUAT
     Dosage: 1.5 MG, TID
  2. DILTIAZEM. [Concomitant]
     Active Substance: DILTIAZEM
  3. OPSUMIT [Suspect]
     Active Substance: MACITENTAN
     Indication: PULMONARY ARTERIAL HYPERTENSION
     Dosage: 10 MG, QD
     Route: 048
     Dates: start: 20160613
  4. ELIQUIS [Concomitant]
     Active Substance: APIXABAN

REACTIONS (11)
  - Lower limb fracture [Not Recovered/Not Resolved]
  - Condition aggravated [Unknown]
  - Dyspnoea [Recovering/Resolving]
  - Pulmonary arterial hypertension [Unknown]
  - Dizziness [Unknown]
  - Fall [Not Recovered/Not Resolved]
  - Musculoskeletal pain [Unknown]
  - Contusion [Unknown]
  - Fatigue [Recovering/Resolving]
  - Hypotension [Unknown]
  - Blood pressure systolic decreased [Unknown]

NARRATIVE: CASE EVENT DATE: 20161217
